FAERS Safety Report 9199622 (Version 2)
Quarter: 2013Q3

REPORT INFORMATION
  Report Type: Spontaneous
  Country: US (occurrence: US)
  Receive Date: 20130329
  Receipt Date: 20130705
  Transmission Date: 20140515
  Serious: No
  Sender: FDA-Public Use
  Company Number: US-GLAXOSMITHKLINE-A1013782A

PATIENT
  Age: 39 Year
  Sex: Female
  Weight: 92.3 kg

DRUGS (5)
  1. BENLYSTA [Suspect]
     Indication: SYSTEMIC LUPUS ERYTHEMATOSUS
     Dosage: 10MGK EVERY TWO WEEKS
     Route: 042
     Dates: start: 20130218
  2. NO CONCURRENT MEDICATION [Concomitant]
  3. PHENERGAN [Concomitant]
  4. ACETAMINOPHEN [Concomitant]
  5. DIPHENHYDRAMINE [Concomitant]

REACTIONS (4)
  - Infusion related reaction [Recovering/Resolving]
  - Local swelling [Recovering/Resolving]
  - Erythema [Recovering/Resolving]
  - Skin fissures [Recovering/Resolving]
